FAERS Safety Report 6542441-2 (Version None)
Quarter: 2010Q1

REPORT INFORMATION
  Report Type: 
  Country: None (occurrence: None)
  Receive Date: 20100119
  Receipt Date: 20100111
  Transmission Date: 20100710
  Serious: Yes (Other)
  Sender: FDA-Public Use
  Company Number: US-ELI_LILLY_AND_COMPANY-US200909006487

PATIENT
  Sex: Female

DRUGS (3)
  1. HUMALOG [Suspect]
     Indication: DIABETES MELLITUS
     Dosage: UNK, 4/D
  2. HUMALOG [Suspect]
     Dosage: UNK, 4/D
  3. LEVEMIR [Concomitant]
     Dosage: 20 U, EACH EVENING

REACTIONS (1)
  - RECTAL CANCER [None]
